FAERS Safety Report 6023818-0 (Version None)
Quarter: 2008Q4

REPORT INFORMATION
  Report Type: 
  Country: None (occurrence: None)
  Receive Date: 20081230
  Receipt Date: 20081218
  Transmission Date: 20090506
  Serious: Yes (Other)
  Sender: FDA-Public Use
  Company Number: BR-PFIZER INC-2008050846

PATIENT

DRUGS (2)
  1. CHAMPIX [Suspect]
     Indication: TOBACCO ABUSE
     Route: 048
     Dates: start: 20080505, end: 20080608
  2. ESTRADIOL [Concomitant]
     Route: 065

REACTIONS (3)
  - ROAD TRAFFIC ACCIDENT [None]
  - SENSORY LOSS [None]
  - SYNCOPE [None]
